FAERS Safety Report 23896094 (Version 1)
Quarter: 2024Q2

REPORT INFORMATION
  Report Type: Spontaneous
  Country: US (occurrence: US)
  Receive Date: 20240524
  Receipt Date: 20240524
  Transmission Date: 20240715
  Serious: Yes (Hospitalization)
  Sender: FDA-Public Use
  Company Number: US-MYLANLABS-2024M1046052

PATIENT
  Age: 51 Year
  Sex: Female

DRUGS (1)
  1. LITHIUM [Suspect]
     Active Substance: LITHIUM
     Indication: Schizophrenia
     Dosage: UNK
     Route: 065

REACTIONS (2)
  - Nephrogenic diabetes insipidus [Recovering/Resolving]
  - Off label use [Unknown]
